FAERS Safety Report 6825865-5 (Version None)
Quarter: 2010Q3

REPORT INFORMATION
  Report Type: 
  Country: None (occurrence: None)
  Receive Date: 20100709
  Receipt Date: 20100702
  Transmission Date: 20110219
  Serious: Yes (Death)
  Sender: FDA-Public Use
  Company Number: TR-ELI_LILLY_AND_COMPANY-TR201007000583

PATIENT
  Sex: Female

DRUGS (2)
  1. HUMALOG MIX 75/25 [Suspect]
     Indication: DIABETES MELLITUS
     Dosage: 20 U, EACH MORNING
     Route: 058
     Dates: start: 20050702
  2. HUMALOG MIX 75/25 [Suspect]
     Dosage: 15 U, EACH EVENING
     Route: 058
     Dates: start: 20050702

REACTIONS (3)
  - DEPRESSED MOOD [None]
  - DIABETIC HYPERGLYCAEMIC COMA [None]
  - HYPERTENSIVE CRISIS [None]
